FAERS Safety Report 7321565-6 (Version None)
Quarter: 2011Q1

REPORT INFORMATION
  Report Type: 
  Country: None (occurrence: None)
  Receive Date: 20110228
  Receipt Date: 20100510
  Transmission Date: 20110831
  Serious: No
  Sender: FDA-Public Use
  Company Number: A0858928A

PATIENT
  Age: 79 Year
  Sex: Female

DRUGS (6)
  1. LEVOTHYROXINE SODIUM [Concomitant]
  2. AMLODIPINE [Concomitant]
  3. BEANO [Suspect]
     Indication: FLATULENCE
     Route: 048
  4. SIMETHICONE [Suspect]
     Indication: FLATULENCE
     Route: 048
  5. VALTREX [Suspect]
     Indication: GENITAL HERPES
     Dosage: 500MG VARIABLE DOSE
     Route: 048
     Dates: start: 20100401
  6. ZOVIRAX [Concomitant]

REACTIONS (2)
  - DRUG INEFFECTIVE [None]
  - FLATULENCE [None]
